FAERS Safety Report 14823925 (Version 1)
Quarter: 2018Q2

REPORT INFORMATION
  Report Type: Spontaneous
  Country: US (occurrence: US)
  Receive Date: 20180428
  Receipt Date: 20180428
  Transmission Date: 20180711
  Serious: Yes (Other)
  Sender: FDA-Public Use
  Company Number: US-IPSEN BIOPHARMACEUTICALS, INC.-2018-06127

PATIENT
  Sex: Male

DRUGS (11)
  1. XERMELO [Suspect]
     Active Substance: TELOTRISTAT ETHYL
     Indication: CARCINOID SYNDROME
     Route: 048
     Dates: start: 20170427, end: 2017
  2. BREO ELLIPTA [Concomitant]
     Active Substance: FLUTICASONE FUROATE\VILANTEROL TRIFENATATE
  3. MICATIN [Concomitant]
     Active Substance: MICONAZOLE NITRATE
  4. COMPAZINE [Concomitant]
     Active Substance: PROCHLORPERAZINE MALEATE
  5. XERMELO [Suspect]
     Active Substance: TELOTRISTAT ETHYL
     Route: 048
     Dates: start: 2017
  6. SOMATULINE [Suspect]
     Active Substance: LANREOTIDE ACETATE
     Indication: PRODUCT USED FOR UNKNOWN INDICATION
     Dosage: NOT REPORTED
     Route: 065
  7. XOPENEX [Concomitant]
     Active Substance: LEVALBUTEROL HYDROCHLORIDE
  8. SPIRONOLACTONE. [Concomitant]
     Active Substance: SPIRONOLACTONE
  9. BENADRYL [Concomitant]
     Active Substance: DIPHENHYDRAMINE HYDROCHLORIDE
  10. XERMELO [Suspect]
     Active Substance: TELOTRISTAT ETHYL
     Route: 048
  11. VITAMIN D [Concomitant]
     Active Substance: CHOLECALCIFEROL

REACTIONS (25)
  - Confusional state [Unknown]
  - Decreased appetite [Unknown]
  - Pyrexia [Unknown]
  - Vomiting [Unknown]
  - Bone pain [Unknown]
  - Muscle spasticity [Unknown]
  - Wheezing [Unknown]
  - Headache [Unknown]
  - Joint injury [Unknown]
  - Diarrhoea [Unknown]
  - Blood potassium decreased [Unknown]
  - Wound infection [Unknown]
  - Fatigue [Unknown]
  - Decubitus ulcer [Unknown]
  - Muscle contractions involuntary [Unknown]
  - Upper-airway cough syndrome [Unknown]
  - Musculoskeletal stiffness [Unknown]
  - Pain [Unknown]
  - Arthralgia [Unknown]
  - Neuropathy peripheral [Unknown]
  - Pruritus [Unknown]
  - Oropharyngeal pain [Unknown]
  - Staphylococcal infection [Unknown]
  - Dyspnoea [Unknown]
  - Aspartate aminotransferase increased [Unknown]

NARRATIVE: CASE EVENT DATE: 2018
